FAERS Safety Report 13817960 (Version 1)
Quarter: 2017Q3

REPORT INFORMATION
  Report Type: Spontaneous
  Country: US (occurrence: US)
  Receive Date: 20170731
  Receipt Date: 20170731
  Transmission Date: 20171127
  Serious: No
  Sender: FDA-Public Use
  Company Number: US-ROCHE-609854

PATIENT
  Age: 80 Year
  Sex: Female
  Weight: 55.3 kg

DRUGS (3)
  1. BONIVA [Suspect]
     Active Substance: IBANDRONATE SODIUM
     Indication: OSTEOPOROSIS
     Dosage: FORM: INJECTION, STRENGTH: 3 MG/3 ML
     Route: 042
  2. TOPROL XL [Concomitant]
     Active Substance: METOPROLOL SUCCINATE
     Indication: ARRHYTHMIA
     Dosage: DOSE FREQUENCY: DAILY
     Route: 048
  3. ASA [Concomitant]
     Active Substance: ASPIRIN
     Dosage: DOSE FREQUENCY: DAILY
     Route: 048

REACTIONS (3)
  - Pain in jaw [Not Recovered/Not Resolved]
  - Toothache [Not Recovered/Not Resolved]
  - Facial pain [Not Recovered/Not Resolved]

NARRATIVE: CASE EVENT DATE: 200812
